FAERS Safety Report 22076715 (Version 1)
Quarter: 2023Q1

REPORT INFORMATION
  Report Type: Spontaneous
  Country: US (occurrence: US)
  Receive Date: 20230309
  Receipt Date: 20230309
  Transmission Date: 20230417
  Serious: No
  Sender: FDA-Public Use
  Company Number: US-LUPIN PHARMACEUTICALS INC.-2023-01746

PATIENT

DRUGS (1)
  1. TOBRAMYCIN [Suspect]
     Active Substance: TOBRAMYCIN
     Indication: Dyspnoea
     Dosage: UNK, BID
     Route: 065

REACTIONS (2)
  - Constipation [Unknown]
  - Product use in unapproved indication [Unknown]
